FAERS Safety Report 6771455-2 (Version None)
Quarter: 2010Q2

REPORT INFORMATION
  Report Type: 
  Country: None (occurrence: None)
  Receive Date: 20100611
  Receipt Date: 20100608
  Transmission Date: 20101027
  Serious: Yes (Life-Threatening)
  Sender: FDA-Public Use
  Company Number: 2010SP027064

PATIENT
  Age: 38 Year
  Sex: Female
  Weight: 49 kg

DRUGS (11)
  1. ESLAX (ROCURONIUM BROMIDE /01245702/) [Suspect]
     Indication: NEUROMUSCULAR BLOCKING THERAPY
     Dosage: 30 MG;ONCE;IV  5 MG;ONCE IV,  15 MG;ONCE IV
     Route: 042
     Dates: start: 20090820, end: 20090820
  2. ESLAX (ROCURONIUM BROMIDE /01245702/) [Suspect]
     Indication: NEUROMUSCULAR BLOCKING THERAPY
     Dosage: 30 MG;ONCE;IV  5 MG;ONCE IV,  15 MG;ONCE IV
     Route: 042
     Dates: start: 20090820, end: 20090820
  3. ESLAX (ROCURONIUM BROMIDE /01245702/) [Suspect]
     Indication: NEUROMUSCULAR BLOCKING THERAPY
     Dosage: 30 MG;ONCE;IV  5 MG;ONCE IV,  15 MG;ONCE IV
     Route: 042
     Dates: start: 20090820, end: 20090820
  4. FENTANYL-100 [Suspect]
     Indication: DRUG USE FOR UNKNOWN INDICATION
     Dosage: 5 ML
     Dates: start: 20090820, end: 20090820
  5. ULTIVA [Suspect]
     Indication: DRUG USE FOR UNKNOWN INDICATION
     Dosage: 0.25 MCG/KG;INDRP
     Route: 041
     Dates: start: 20090820, end: 20090820
  6. SEVOFLURANE [Concomitant]
  7. PROPOFOL [Concomitant]
  8. ATROPINE [Concomitant]
  9. ROPION [Concomitant]
  10. MIDAZOLAM HCL [Concomitant]
  11. DROPERIDOL [Concomitant]

REACTIONS (2)
  - BRADYCARDIA [None]
  - CAROTID SINUS SYNDROME [None]
